FAERS Safety Report 16088074 (Version 1)
Quarter: 2019Q1

REPORT INFORMATION
  Report Type: Spontaneous
  Country: IT (occurrence: IT)
  Receive Date: 20190319
  Receipt Date: 20190319
  Transmission Date: 20190418
  Serious: Yes (Hospitalization, Other)
  Sender: FDA-Public Use
  Company Number: IT-ACCORD-113635

PATIENT
  Age: 53 Year
  Sex: Female
  Weight: 52 kg

DRUGS (6)
  1. MONTELUKAST [Suspect]
     Active Substance: MONTELUKAST SODIUM
     Indication: ASTHMA
     Dosage: 10 MG, QD
     Route: 048
  2. BECLOMETASONE [Suspect]
     Active Substance: BECLOMETHASONE DIPROPIONATE
     Indication: ASTHMA
     Dosage: 100/6 MICROGRAM, TWO INHALATIONS TWICE DAILY PLUS AS NEEDED
     Route: 055
  3. METHYLPREDNISOLONE. [Suspect]
     Active Substance: METHYLPREDNISOLONE
     Indication: ASTHMA
     Dosage: 4 MG DAILY (TO BE INCREASED IN CASE OF AN EXACERBATION)
     Route: 065
  4. CHOLINE THEOPHYLLINATE/THEOPHYLLINE/THEOPHYLLINE CALCIUM AMINOACET/THEOPHYLLINE MONOETHANOLAMINE/THE [Suspect]
     Active Substance: THEOPHYLLINE ANHYDROUS
     Indication: ASTHMA
     Dosage: 300 MG, BID
     Route: 065
  5. XOLAIR [Suspect]
     Active Substance: OMALIZUMAB
     Indication: ASTHMA
     Dosage: 300 MG,(EVERY 4 WEEK)
     Route: 058
     Dates: start: 2003
  6. TIOTROPIUM [Suspect]
     Active Substance: TIOTROPIUM
     Indication: ASTHMA
     Dosage: 18 MICROGRAM PER DAY
     Route: 065

REACTIONS (4)
  - Therapeutic response decreased [Unknown]
  - Asthma [Recovered/Resolved]
  - Drug resistance [Unknown]
  - Asthmatic crisis [Recovered/Resolved]
